FAERS Safety Report 5483823-X (Version None)
Quarter: 2007Q4

REPORT INFORMATION
  Report Type: 
  Country: None (occurrence: None)
  Receive Date: 20071012
  Receipt Date: 20070109
  Transmission Date: 20080405
  Serious: Yes (Other)
  Sender: FDA-Public Use
  Company Number: US-JNJFOC-20071001587

PATIENT
  Sex: Female

DRUGS (3)
  1. IBUPROFEN [Suspect]
     Indication: PAIN
  2. LYRICA [Suspect]
     Indication: PAIN
  3. UNSPECIFIED MEDICATIONS [Concomitant]

REACTIONS (2)
  - NAUSEA [None]
  - PRESYNCOPE [None]
